FAERS Safety Report 17160064 (Version 3)
Quarter: 2020Q2

REPORT INFORMATION
  Report Type: Spontaneous
  Country: US (occurrence: US)
  Receive Date: 20191216
  Receipt Date: 20200521
  Transmission Date: 20200713
  Serious: Yes (Other)
  Sender: FDA-Public Use
  Company Number: US-SA-2019SA346676

PATIENT
  Age: 64 Year
  Sex: Female
  Weight: 76 kg

DRUGS (23)
  1. TAXOTERE [Suspect]
     Active Substance: DOCETAXEL
     Dosage: UNK UNK, Q3W
     Route: 042
     Dates: start: 20121031, end: 20121031
  2. PROCHLORPERAZINE. [Concomitant]
     Active Substance: PROCHLORPERAZINE
  3. MAGNESIUM OXIDE. [Concomitant]
     Active Substance: MAGNESIUM OXIDE
  4. FUROSEMIDE. [Concomitant]
     Active Substance: FUROSEMIDE
  5. POTASSIUM [Concomitant]
     Active Substance: POTASSIUM
  6. TAMOXIFEN [Concomitant]
     Active Substance: TAMOXIFEN
  7. LEVOFLOXACIN. [Concomitant]
     Active Substance: LEVOFLOXACIN
  8. EXEMESTANE. [Concomitant]
     Active Substance: EXEMESTANE
  9. VITAMIN D2 [Concomitant]
     Active Substance: ERGOCALCIFEROL
  10. CEPHALEXIN [CEFALEXIN] [Concomitant]
     Active Substance: CEPHALEXIN
  11. TAXOTERE [Suspect]
     Active Substance: DOCETAXEL
     Indication: BREAST CANCER FEMALE
     Dosage: UNK UNK, Q3W
     Route: 042
     Dates: start: 20120718, end: 20120718
  12. DEXAMETHASONE. [Concomitant]
     Active Substance: DEXAMETHASONE
  13. TRIAMTERENE. [Concomitant]
     Active Substance: TRIAMTERENE
  14. ANASTROZOLE. [Concomitant]
     Active Substance: ANASTROZOLE
  15. OMEPRAZOLE. [Concomitant]
     Active Substance: OMEPRAZOLE
  16. VAGIFEM [Concomitant]
     Active Substance: ESTRADIOL
  17. ESTRACE [Concomitant]
     Active Substance: ESTRADIOL
  18. PARAPLATIN [Concomitant]
     Active Substance: CARBOPLATIN
     Indication: BREAST CANCER FEMALE
  19. METRONIDAZOLE. [Concomitant]
     Active Substance: METRONIDAZOLE
  20. AMOXICILLIN. [Concomitant]
     Active Substance: AMOXICILLIN
  21. ENOXAPARIN [Concomitant]
     Active Substance: ENOXAPARIN
  22. K PHOS NEUTRAL [Concomitant]
     Active Substance: POTASSIUM PHOSPHATE, MONOBASIC\SODIUM PHOSPHATE, DIBASIC, ANHYDROUS\SODIUM PHOSPHATE, MONOBASIC, MONOHYDRATE
  23. PREMARIN [Concomitant]
     Active Substance: ESTROGENS, CONJUGATED

REACTIONS (6)
  - Psychological trauma [Unknown]
  - Emotional distress [Unknown]
  - Alopecia [Not Recovered/Not Resolved]
  - Pain [Unknown]
  - Impaired quality of life [Unknown]
  - Anxiety [Unknown]

NARRATIVE: CASE EVENT DATE: 20130531
